FAERS Safety Report 5337881-3 (Version None)
Quarter: 2007Q2

REPORT INFORMATION
  Report Type: 
  Country: None (occurrence: None)
  Receive Date: 20070327
  Receipt Date: 20070202
  Transmission Date: 20071010
  Serious: No
  Sender: FDA-Public Use
  Company Number: 236121

PATIENT
  Age: 90 Year
  Sex: Female

DRUGS (1)
  1. AVASTIN [Suspect]
     Indication: HEPATIC NEOPLASM MALIGNANT

REACTIONS (1)
  - BLOOD BLISTER [None]
